FAERS Safety Report 7887840-1 (Version None)
Quarter: 2011Q4

REPORT INFORMATION
  Report Type: 
  Country: None (occurrence: None)
  Receive Date: 20111103
  Receipt Date: 20111028
  Transmission Date: 20120403
  Serious: Yes (Life-Threatening)
  Sender: FDA-Public Use
  Company Number: ES-CELGENEUS-144-C5013-11033552

PATIENT
  Sex: Male
  Weight: 67.5 kg

DRUGS (10)
  1. LENALIDOMIDE [Suspect]
     Dosage: 25 MILLIGRAM
     Route: 048
     Dates: start: 20110127, end: 20110210
  2. ENOXAPARIN SODIUM [Concomitant]
     Indication: THROMBOPHLEBITIS
     Dosage: 40 MILLIGRAM
     Route: 058
     Dates: start: 20100620
  3. SCOPOLAMINE [Concomitant]
     Indication: ABDOMINAL PAIN
     Route: 048
     Dates: start: 20110127
  4. BUSCAPINE [Concomitant]
     Indication: ABDOMINAL PAIN
     Dosage: 30 MILLIGRAM
     Route: 048
     Dates: start: 20110209
  5. SPASMOCTYL [Concomitant]
     Indication: ABDOMINAL PAIN
     Route: 048
     Dates: start: 20110203, end: 20110209
  6. SIMETICONE [Concomitant]
     Indication: AEROPHAGIA
     Route: 048
     Dates: start: 20110203, end: 20110209
  7. OMEPRAZOLE [Concomitant]
     Indication: PROPHYLAXIS
     Dosage: 40 MILLIGRAM
     Route: 048
     Dates: start: 20110127
  8. MEGESTROL ACETATE [Concomitant]
     Dosage: 320 MILLIGRAM
     Route: 048
     Dates: start: 20110120, end: 20110209
  9. LENALIDOMIDE [Suspect]
     Indication: NON-HODGKIN'S LYMPHOMA
     Dosage: 25 MILLIGRAM
     Route: 048
     Dates: start: 20100601
  10. DOMPERIDONA GAMIR [Concomitant]
     Indication: VOMITING
     Dosage: 2 MILLIGRAM/MILLILITERS
     Route: 048
     Dates: start: 20110129

REACTIONS (1)
  - COLON CANCER METASTATIC [None]
